FAERS Safety Report 6944701-X (Version None)
Quarter: 2010Q3

REPORT INFORMATION
  Report Type: 
  Country: None (occurrence: None)
  Receive Date: 20100827
  Receipt Date: 20100823
  Transmission Date: 20110219
  Serious: No
  Sender: FDA-Public Use
  Company Number: US-RB-010738-10

PATIENT
  Sex: Female

DRUGS (6)
  1. SUBOXONE [Suspect]
     Indication: DRUG DEPENDENCE
     Dosage: 24-32 MG DAILY
     Route: 060
     Dates: start: 20070101
  2. SUBOXONE [Suspect]
     Dosage: TAPERIENG DOSES
     Route: 060
  3. SUBOXONE [Suspect]
     Route: 060
  4. LAMICTAL [Concomitant]
     Indication: POST-TRAUMATIC EPILEPSY
     Dosage: 150 MG  IN THE AM/300 MG IN THE PM
     Route: 065
  5. NEURONTIN [Concomitant]
     Indication: POST-TRAUMATIC EPILEPSY
     Route: 065
  6. VALIUM [Concomitant]
     Indication: PRODUCT USED FOR UNKNOWN INDICATION
     Dosage: DOSING DETAILS UNKNOWN
     Route: 065

REACTIONS (5)
  - BALANCE DISORDER [None]
  - DIZZINESS [None]
  - FEELING ABNORMAL [None]
  - PSYCHIATRIC SYMPTOM [None]
  - SELF ESTEEM DECREASED [None]
